FAERS Safety Report 14348342 (Version 2)
Quarter: 2018Q1

REPORT INFORMATION
  Report Type: Not Available
  Country: US (occurrence: US)
  Receive Date: 20180103
  Receipt Date: 20180122
  Transmission Date: 20180509
  Serious: No
  Sender: FDA-Public Use
  Company Number: US-NEUROCRINE BIOSCIENCES INC.-2017NBI01461

PATIENT
  Age: 72 Year
  Sex: Female

DRUGS (6)
  1. INGREZZA [Suspect]
     Active Substance: VALBENAZINE
     Route: 048
  2. DEPAKOTE [Concomitant]
     Active Substance: DIVALPROEX SODIUM
     Dosage: 250/500 MG
  3. FLUOXETINE [Concomitant]
     Active Substance: FLUOXETINE HYDROCHLORIDE
     Dosage: IN THE MORNING
  4. INGREZZA [Suspect]
     Active Substance: VALBENAZINE
     Indication: PRODUCT USED FOR UNKNOWN INDICATION
     Route: 048
     Dates: start: 20170830, end: 20170905
  5. INGREZZA [Suspect]
     Active Substance: VALBENAZINE
     Route: 048
     Dates: start: 20170906, end: 20171019
  6. ZALEPLON. [Concomitant]
     Active Substance: ZALEPLON
     Dosage: 5-10 MG QHS

REACTIONS (5)
  - Salivary hypersecretion [Unknown]
  - Dysphagia [Unknown]
  - Off label use [Unknown]
  - Speech disorder [Unknown]
  - Drooling [Unknown]

NARRATIVE: CASE EVENT DATE: 20170830
